FAERS Safety Report 7323423-X (Version None)
Quarter: 2011Q1

REPORT INFORMATION
  Report Type: 
  Country: None (occurrence: None)
  Receive Date: 20110301
  Receipt Date: 20110218
  Transmission Date: 20110831
  Serious: Yes (Other)
  Sender: FDA-Public Use
  Company Number: US-SANOFI-AVENTIS-2011SA011570

PATIENT
  Age: 56 Year
  Sex: Male

DRUGS (5)
  1. MULTAQ [Suspect]
     Indication: ATRIAL FIBRILLATION
     Route: 048
     Dates: start: 20110101
  2. COUMADIN [Suspect]
     Route: 065
  3. HYDRALAZINE [Concomitant]
     Indication: BLOOD PRESSURE
  4. COREG [Concomitant]
  5. CRESTOR [Concomitant]

REACTIONS (3)
  - GASTROINTESTINAL DISORDER [None]
  - INTERNATIONAL NORMALISED RATIO INCREASED [None]
  - DIARRHOEA [None]
